FAERS Safety Report 9798044 (Version 2)
Quarter: 2014Q1

REPORT INFORMATION
  Report Type: Spontaneous
  Country: FR (occurrence: FR)
  Receive Date: 20140106
  Receipt Date: 20140110
  Transmission Date: 20141002
  Serious: Yes (Hospitalization, Other)
  Sender: FDA-Public Use
  Company Number: FR-009507513-1312FRA011563

PATIENT
  Age: 86 Year
  Sex: Male

DRUGS (10)
  1. SINGULAIR [Suspect]
     Dosage: 10 MG, QD
     Route: 048
     Dates: end: 20131114
  2. XARELTO [Suspect]
     Dosage: 15 MG, QD
     Route: 048
     Dates: start: 20130823, end: 20131005
  3. ZYLORIC [Suspect]
     Dosage: 300 MG, QD
     Route: 048
     Dates: end: 20131114
  4. INEXIUM [Suspect]
     Dosage: 20 MG, QD
     Route: 048
     Dates: end: 20131114
  5. LASILIX [Suspect]
     Dosage: 125 MG, QD
     Route: 048
     Dates: end: 20131114
  6. JOSIR [Suspect]
     Dosage: UNK
     Route: 048
     Dates: end: 20131114
  7. INSPRA [Suspect]
     Dosage: 25 MG, QD
     Dates: end: 20131114
  8. INSPRA [Suspect]
     Dosage: UNK
  9. PROZAC [Concomitant]
     Dosage: 20 MG, QD
     Route: 048
  10. KARDEGIC [Concomitant]
     Dosage: 75 MG, QD
     Route: 048

REACTIONS (3)
  - Drug reaction with eosinophilia and systemic symptoms [Recovering/Resolving]
  - Rash [Recovering/Resolving]
  - Eosinophilia [Recovered/Resolved]
